FAERS Safety Report 20891333 (Version 2)
Quarter: 2022Q3

REPORT INFORMATION
  Report Type: Spontaneous
  Country: US (occurrence: US)
  Receive Date: 20220530
  Receipt Date: 20220712
  Transmission Date: 20221027
  Serious: No
  Sender: FDA-Public Use
  Company Number: US-BRISTOL-MYERS SQUIBB COMPANY-2022-033994

PATIENT
  Age: 90 Year
  Sex: Female

DRUGS (2)
  1. REVLIMID [Suspect]
     Active Substance: LENALIDOMIDE
     Indication: 5q minus syndrome
     Dosage: FREQ- TAKE 1 CAPSULE BY MOUTH DAILY ON MONDAY- FRIDAY EACH WEEK FOR 3 WEEKS ON THEN 1 WEEK OFF
     Route: 048
     Dates: start: 20211117
  2. REVLIMID [Suspect]
     Active Substance: LENALIDOMIDE
     Dosage: FREQ - TAKE 1 CAPSULE BY MOUTH ON MONDAY,WEDNESDAY,FRIDAY AND SATURDAY WEEKLY FOR 3 WEEKS THEN OFF F
     Route: 048

REACTIONS (5)
  - Bowel movement irregularity [Not Recovered/Not Resolved]
  - Platelet count decreased [Recovering/Resolving]
  - Blood iron decreased [Not Recovered/Not Resolved]
  - Asthenia [Unknown]
  - Diarrhoea [Unknown]
